FAERS Safety Report 16080995 (Version 11)
Quarter: 2020Q2

REPORT INFORMATION
  Report Type: Spontaneous
  Country: CA (occurrence: CA)
  Receive Date: 20190316
  Receipt Date: 20200607
  Transmission Date: 20200713
  Serious: Yes (Other)
  Sender: FDA-Public Use
  Company Number: CA-CELLTRION INC.-2019CA018136

PATIENT

DRUGS (11)
  1. INFLECTRA [Suspect]
     Active Substance: INFLIXIMAB-DYYB
     Indication: CROHN^S DISEASE
     Dosage: 10MG/KG (700MG) EVERY 0, 2, 6 THEN EVERY 8 WEEKS
     Route: 042
     Dates: start: 20190116, end: 20190116
  2. INFLECTRA [Suspect]
     Active Substance: INFLIXIMAB-DYYB
     Dosage: 800 MG EVERY 6 WEEKS
     Route: 042
     Dates: start: 20191001
  3. INFLECTRA [Suspect]
     Active Substance: INFLIXIMAB-DYYB
     Dosage: 800 MG EVERY 6 WEEKS
     Route: 042
     Dates: start: 20190823
  4. INFLECTRA [Suspect]
     Active Substance: INFLIXIMAB-DYYB
     Dosage: 10MG/KG (700MG) EVERY 0,2,6 WEEKS THEN EVERY 8 WEEKS
     Route: 042
     Dates: start: 20190130, end: 20190130
  5. INFLECTRA [Suspect]
     Active Substance: INFLIXIMAB-DYYB
     Dosage: 800 MG EVERY 6 WEEKS
     Route: 042
     Dates: start: 20190710
  6. INFLECTRA [Suspect]
     Active Substance: INFLIXIMAB-DYYB
     Dosage: 800 MG EVERY 7 WEEKS
     Route: 042
     Dates: start: 20191121
  7. INFLECTRA [Suspect]
     Active Substance: INFLIXIMAB-DYYB
     Dosage: 800 MG EVERY 7 WEEKS
     Route: 042
     Dates: start: 20200528
  8. INFLECTRA [Suspect]
     Active Substance: INFLIXIMAB-DYYB
     Dosage: 800 MG EVERY 6 WEEKS
     Route: 042
     Dates: start: 20190416, end: 20190416
  9. INFLECTRA [Suspect]
     Active Substance: INFLIXIMAB-DYYB
     Dosage: 10MG/KG (700MG) EVERY 0,2,6 WEEKS THEN EVERY 8 WEEKS
     Route: 042
     Dates: start: 20190227, end: 20190227
  10. INFLECTRA [Suspect]
     Active Substance: INFLIXIMAB-DYYB
     Dosage: 800 MG EVERY 6 WEEKS
     Route: 042
     Dates: start: 20190529
  11. INFLECTRA [Suspect]
     Active Substance: INFLIXIMAB-DYYB
     Dosage: 800 MG EVERY 7 WEEKS
     Route: 042
     Dates: start: 20200108

REACTIONS (6)
  - Condition aggravated [Unknown]
  - Heart rate irregular [Unknown]
  - Maternal exposure during pregnancy [Unknown]
  - Weight increased [Unknown]
  - Blood albumin decreased [Not Recovered/Not Resolved]
  - Off label use [Unknown]

NARRATIVE: CASE EVENT DATE: 20190116
